FAERS Safety Report 7751213-2 (Version None)
Quarter: 2011Q3

REPORT INFORMATION
  Report Type: 
  Country: None (occurrence: None)
  Receive Date: 20110914
  Receipt Date: 20080627
  Transmission Date: 20111222
  Serious: Yes (Other)
  Sender: FDA-Public Use
  Company Number: PHHY2008NL37306

PATIENT
  Sex: Female

DRUGS (3)
  1. DRUG THERAPY NOS [Concomitant]
  2. SANDOSTATIN LAR [Suspect]
     Indication: CARCINOID TUMOUR
     Dosage: 20 MG, ONCE PER 4 WEEKS
     Dates: start: 20060928
  3. SANDOSTATIN LAR [Suspect]
     Dosage: 20 MG, ONCE PER 4 WEEKS
     Dates: start: 20080605

REACTIONS (1)
  - TERMINAL STATE [None]
